FAERS Safety Report 12525307 (Version 2)
Quarter: 2016Q3

REPORT INFORMATION
  Report Type: Spontaneous
  Country: JP (occurrence: JP)
  Receive Date: 20160704
  Receipt Date: 20160830
  Transmission Date: 20161109
  Serious: Yes (Hospitalization)
  Sender: FDA-Public Use
  Company Number: JP-ASTRAZENECA-2016SE71426

PATIENT
  Age: 72 Year
  Sex: Female
  Weight: 52 kg

DRUGS (7)
  1. IRESSA [Suspect]
     Active Substance: GEFITINIB
     Indication: LUNG ADENOCARCINOMA
     Route: 048
     Dates: start: 20160120, end: 20160524
  2. MS-TWICELON [Concomitant]
     Route: 048
  3. ETIZOLAM [Concomitant]
     Active Substance: ETIZOLAM
     Route: 065
  4. SENNOSIDE [Concomitant]
     Active Substance: SENNOSIDES
     Route: 065
  5. FAMOTIDINE. [Concomitant]
     Active Substance: FAMOTIDINE
     Route: 065
  6. OPSO [Concomitant]
     Active Substance: MORPHINE HYDROCHLORIDE
     Dosage: NUMBER OF SEPARATE DOSAGES UNKNOWN
     Route: 065
  7. MAGMITT [Concomitant]
     Active Substance: MAGNESIUM OXIDE
     Route: 065

REACTIONS (3)
  - Excessive granulation tissue [Not Recovered/Not Resolved]
  - Eczema [Unknown]
  - Decreased appetite [Unknown]

NARRATIVE: CASE EVENT DATE: 20160329
